FAERS Safety Report 21080621 (Version 1)
Quarter: 2022Q3

REPORT INFORMATION
  Report Type: Spontaneous
  Country: US (occurrence: None)
  Receive Date: 20220713
  Receipt Date: 20220713
  Transmission Date: 20221027
  Serious: Yes (Hospitalization)
  Sender: FDA-Public Use
  Company Number: None

PATIENT
  Age: 56 Year
  Sex: Female

DRUGS (1)
  1. TACROLIMUS [Suspect]
     Active Substance: TACROLIMUS
     Indication: Renal transplant
     Dosage: OTHER QUANTITY : 1.5MG, 1MG;?FREQUENCY : AS DIRECTED;?
     Route: 048
     Dates: start: 20200124

REACTIONS (2)
  - Viral infection [None]
  - Chills [None]

NARRATIVE: CASE EVENT DATE: 20220630
